FAERS Safety Report 9341381 (Version 1)
Quarter: 2013Q2

REPORT INFORMATION
  Report Type: Spontaneous
  Country: FR (occurrence: FR)
  Receive Date: 20130611
  Receipt Date: 20130611
  Transmission Date: 20140414
  Serious: Yes (Hospitalization)
  Sender: FDA-Public Use
  Company Number: FR-JNJFOC-20130521272

PATIENT
  Age: 85 Year
  Sex: Female

DRUGS (17)
  1. SPORANOX [Suspect]
     Indication: BRONCHOPULMONARY ASPERGILLOSIS
     Route: 048
     Dates: start: 20120715, end: 20130205
  2. ANSATIPINE [Suspect]
     Indication: MYCOBACTERIUM AVIUM COMPLEX INFECTION
     Route: 048
     Dates: start: 20120915, end: 20130206
  3. DEXAMBUTOL [Suspect]
     Indication: PRODUCT USED FOR UNKNOWN INDICATION
     Route: 048
     Dates: start: 20121115, end: 20130206
  4. MYAMBUTOL [Suspect]
     Indication: PRODUCT USED FOR UNKNOWN INDICATION
     Route: 048
     Dates: start: 20121115, end: 20130206
  5. SERETIDE [Concomitant]
     Route: 065
  6. SPIRIVA [Concomitant]
     Route: 065
  7. SINGULAIR [Concomitant]
     Route: 065
  8. AERIUS [Concomitant]
     Route: 065
  9. OXEOL [Concomitant]
     Route: 065
  10. FOSAMAX [Concomitant]
     Route: 065
  11. INEXIUM [Concomitant]
     Route: 065
  12. MOTILIUM [Concomitant]
     Route: 048
  13. GAVISCON NOS [Concomitant]
     Route: 048
  14. LEVOTHYROX [Concomitant]
     Route: 048
  15. CACIT VITAMINE D3 [Concomitant]
     Route: 048
  16. FORSTEO [Concomitant]
     Route: 065
  17. NEO CODION [Concomitant]
     Route: 065

REACTIONS (1)
  - Uveitis [Recovered/Resolved]
